FAERS Safety Report 7476597-4 (Version None)
Quarter: 2011Q2

REPORT INFORMATION
  Report Type: 
  Country: None (occurrence: None)
  Receive Date: 20110510
  Receipt Date: 20110510
  Transmission Date: 20111010
  Serious: Yes (Hospitalization)
  Sender: FDA-Public Use
  Company Number: None

PATIENT
  Sex: Female

DRUGS (4)
  1. OMNIPAQUE 140 [Concomitant]
  2. DEXAMETHASONE [Suspect]
     Indication: PAIN
     Dosage: 10MG ONCE EPIDURAL
     Route: 008
     Dates: start: 20110428, end: 20110428
  3. DEXAMETHASONE [Suspect]
     Indication: OSTEOARTHRITIS
     Dosage: 10MG ONCE EPIDURAL
     Route: 008
     Dates: start: 20110428, end: 20110428
  4. PRESERVATIVE FREE SALINE [Concomitant]

REACTIONS (6)
  - FEELING ABNORMAL [None]
  - HYPOTENSION [None]
  - BURNING SENSATION [None]
  - MENTAL STATUS CHANGES [None]
  - HEADACHE [None]
  - NECK PAIN [None]
